FAERS Safety Report 4302279-3 (Version None)
Quarter: 2004Q1

REPORT INFORMATION
  Report Type: 
  Country: None (occurrence: None)
  Receive Date: 20040126
  Receipt Date: 20031009
  Transmission Date: 20041129
  Serious: No
  Sender: FDA-Public Use
  Company Number: USA031049512

PATIENT
  Sex: Female

DRUGS (4)
  1. PROZAC [Suspect]
     Indication: DEPRESSION
     Dates: end: 19970101
  2. STRATTERA [Suspect]
     Indication: ATTENTION DEFICIT/HYPERACTIVITY DISORDER
     Dosage: 40 MG/DAY
     Dates: start: 20030927
  3. CELEXA [Concomitant]
  4. EFEFXOR (VENLAFAXINE HYDROCHLORIDE) [Concomitant]

REACTIONS (2)
  - APATHY [None]
  - DISTURBANCE IN ATTENTION [None]
